FAERS Safety Report 9782700 (Version 1)
Quarter: 2013Q4

REPORT INFORMATION
  Report Type: Spontaneous
  Country: AU (occurrence: AU)
  Receive Date: 20131226
  Receipt Date: 20131226
  Transmission Date: 20140711
  Serious: Yes (Other)
  Sender: FDA-Public Use
  Company Number: PHHY2013AU151485

PATIENT
  Age: 63 Year
  Sex: Female

DRUGS (1)
  1. SANDOSTATIN LAR [Suspect]
     Dosage: UNK UKN, UNK

REACTIONS (5)
  - Paraesthesia [Unknown]
  - Chest discomfort [Unknown]
  - Oedema peripheral [Unknown]
  - Dyspnoea exertional [Unknown]
  - Diarrhoea [Unknown]
